FAERS Safety Report 17870318 (Version 1)
Quarter: 2020Q2

REPORT INFORMATION
  Report Type: Spontaneous
  Country: US (occurrence: US)
  Receive Date: 20200605
  Receipt Date: 20200605
  Transmission Date: 20200714
  Serious: Yes (Disabling)
  Sender: FDA-Public Use
  Company Number: None

PATIENT
  Age: 44 Year
  Sex: Female
  Weight: 54 kg

DRUGS (1)
  1. ETONOGESTREL/ETHINYL ESTRADIOL [Suspect]
     Active Substance: ETHINYL ESTRADIOL\ETONOGESTREL
     Indication: ENDOMETRIOSIS
     Dosage: ?          QUANTITY:1 RING;OTHER FREQUENCY:1 RING A MONTH;?
     Route: 067
     Dates: start: 20200525, end: 20200605

REACTIONS (4)
  - Pelvic pain [None]
  - Abdominal tenderness [None]
  - Product substitution issue [None]
  - Abdominal distension [None]

NARRATIVE: CASE EVENT DATE: 20200525
